FAERS Safety Report 8029680-9 (Version None)
Quarter: 2012Q1

REPORT INFORMATION
  Report Type: 
  Country: None (occurrence: None)
  Receive Date: 20120109
  Receipt Date: 20111228
  Transmission Date: 20120608
  Serious: Yes (Hospitalization, Other)
  Sender: FDA-Public Use
  Company Number: BR-PFIZER INC-2012003801

PATIENT
  Age: 61 Year
  Sex: Male

DRUGS (2)
  1. AMLODIPINE BESYLATE [Suspect]
     Indication: HYPERTENSION
     Dosage: 5 MG, 1X/DAY
     Route: 048
     Dates: start: 20070101, end: 20111201
  2. BENICAR HCT [Suspect]
     Indication: HYPERTENSION
     Dosage: 40/25 MG, 1X/DAY
     Route: 048
     Dates: start: 20070101, end: 20111201

REACTIONS (6)
  - FALL [None]
  - DRUG INEFFECTIVE [None]
  - BLOOD PRESSURE SYSTOLIC INCREASED [None]
  - ROTATOR CUFF SYNDROME [None]
  - POLYURIA [None]
  - HYPOKALAEMIA [None]
